FAERS Safety Report 7345116-5 (Version None)
Quarter: 2011Q1

REPORT INFORMATION
  Report Type: 
  Country: None (occurrence: None)
  Receive Date: 20110310
  Receipt Date: 20110307
  Transmission Date: 20110831
  Serious: Yes (Death, Other)
  Sender: FDA-Public Use
  Company Number: US-ELI_LILLY_AND_COMPANY-US201101004215

PATIENT
  Age: 89 Year
  Sex: Female

DRUGS (8)
  1. VITAMIN D [Concomitant]
     Dosage: UNK, UNKNOWN
     Route: 065
  2. CALCIUM [Concomitant]
     Dosage: UNK, UNKNOWN
     Route: 065
  3. METOPROLOL [Concomitant]
     Dosage: UNK, UNKNOWN
     Route: 065
  4. POTASSIUM [Concomitant]
     Dosage: UNK, UNKNOWN
     Route: 065
  5. FORTEO [Suspect]
     Indication: OSTEOPOROSIS
     Dosage: UNK, UNKNOWN
     Route: 065
     Dates: end: 20101209
  6. DIGOXIN [Concomitant]
     Dosage: UNK, UNKNOWN
     Route: 065
  7. METFORMIN [Concomitant]
     Dosage: UNK, UNKNOWN
     Route: 065
  8. LASIX [Concomitant]
     Dosage: UNK, UNKNOWN
     Route: 065

REACTIONS (3)
  - CEREBROVASCULAR ACCIDENT [None]
  - ATRIAL FIBRILLATION [None]
  - ARTERIOSCLEROSIS [None]
